FAERS Safety Report 16357579 (Version 1)
Quarter: 2019Q2

REPORT INFORMATION
  Report Type: Spontaneous
  Country: US (occurrence: US)
  Receive Date: 20190418
  Receipt Date: 20190418
  Transmission Date: 20190711
  Serious: Yes (Life-Threatening, Disabling, Other)
  Sender: FDA-Public Use
  Company Number: None

PATIENT
  Age: 59 Year
  Sex: Female
  Weight: 127.01 kg

DRUGS (1)
  1. LOSARTAN/HCTZ TAB [Suspect]
     Active Substance: HYDROCHLOROTHIAZIDE\LOSARTAN
     Indication: HYPERTENSION
     Dosage: ?          QUANTITY:1 DF DOSAGE FORM;?
     Route: 048
     Dates: end: 20190301

REACTIONS (17)
  - Loss of personal independence in daily activities [None]
  - Movement disorder [None]
  - Gait disturbance [None]
  - Somnolence [None]
  - Pain in extremity [None]
  - Heart rate [None]
  - Peripheral swelling [None]
  - Hypertension [None]
  - Asthenia [None]
  - Arthralgia [None]
  - Headache [None]
  - Back pain [None]
  - Dyspnoea [None]
  - Chest pain [None]
  - Renal pain [None]
  - Hypoaesthesia [None]
  - Dizziness [None]
